FAERS Safety Report 7378392-3 (Version None)
Quarter: 2011Q1

REPORT INFORMATION
  Report Type: 
  Country: None (occurrence: None)
  Receive Date: 20110328
  Receipt Date: 20110316
  Transmission Date: 20110831
  Serious: Yes (Hospitalization)
  Sender: FDA-Public Use
  Company Number: FR-EISAI INC-E3810-04544-SPO-FR

PATIENT
  Sex: Male

DRUGS (9)
  1. GLIBENCLAMIDE [Concomitant]
  2. METFORMINE [Concomitant]
  3. TRIFLUCAN [Concomitant]
     Route: 048
     Dates: start: 20101118, end: 20101201
  4. RAMIPRIL [Concomitant]
  5. KARDEGIC [Concomitant]
     Route: 048
  6. AMLODIPINE [Concomitant]
  7. PARIET (RABEPRAZOLE) [Suspect]
     Indication: OESOPHAGITIS
     Route: 048
     Dates: start: 20100927
  8. BISOPROLOL [Concomitant]
  9. METHOTREXATE [Suspect]
     Indication: PSORIATIC ARTHROPATHY
     Route: 030
     Dates: start: 20090201, end: 20101203

REACTIONS (3)
  - DRUG INTERACTION [None]
  - PANCYTOPENIA [None]
  - LUNG INFECTION [None]
